FAERS Safety Report 18361776 (Version 6)
Quarter: 2021Q4

REPORT INFORMATION
  Report Type: Spontaneous
  Country: AU (occurrence: AU)
  Receive Date: 20201008
  Receipt Date: 20211015
  Transmission Date: 20220303
  Serious: Yes (Other)
  Sender: FDA-Public Use
  Company Number: NVSC2020AU241689

PATIENT
  Sex: Male
  Weight: 24.5 kg

DRUGS (3)
  1. KYMRIAH [Suspect]
     Active Substance: TISAGENLECLEUCEL
     Indication: Philadelphia positive acute lymphocytic leukaemia
     Dosage: 2.5X10E6/KG, ONCE/SINGLE
     Route: 042
     Dates: start: 20200511
  2. KYMRIAH [Suspect]
     Active Substance: TISAGENLECLEUCEL
     Dosage: UNK, ONCE/SINGLE
     Route: 042
     Dates: start: 20201118
  3. KYMRIAH [Suspect]
     Active Substance: TISAGENLECLEUCEL
     Dosage: UNK, ONCE/SINGLE
     Route: 042
     Dates: start: 20211011

REACTIONS (4)
  - B-lymphocyte count increased [Unknown]
  - Acute lymphocytic leukaemia recurrent [Unknown]
  - Expired product administered [Unknown]
  - Off label use [Unknown]
